FAERS Safety Report 16970501 (Version 1)
Quarter: 2019Q4

REPORT INFORMATION
  Report Type: Spontaneous
  Country: US (occurrence: US)
  Receive Date: 20191028
  Receipt Date: 20191028
  Transmission Date: 20200122
  Serious: Yes (Other)
  Sender: FDA-Public Use
  Company Number: None

PATIENT
  Age: 66 Year
  Weight: 72 kg

DRUGS (1)
  1. RANITIDINE. [Suspect]
     Active Substance: RANITIDINE
     Indication: ABDOMINAL PAIN UPPER
     Dosage: ?          QUANTITY:1 TABLET(S);OTHER FREQUENCY:2 TO 3 TIMES DAY;?
     Route: 048

REACTIONS (2)
  - Gastric disorder [None]
  - Recalled product [None]

NARRATIVE: CASE EVENT DATE: 20141001
